FAERS Safety Report 8153325-0 (Version None)
Quarter: 2012Q1

REPORT INFORMATION
  Report Type: 
  Country: None (occurrence: None)
  Receive Date: 20120221
  Receipt Date: 20120209
  Transmission Date: 20120608
  Serious: Yes (Other)
  Sender: FDA-Public Use
  Company Number: US-ELI_LILLY_AND_COMPANY-US201202004233

PATIENT
  Sex: Female

DRUGS (5)
  1. CYMBALTA [Suspect]
     Dosage: 120 MG, QD
  2. LAMICTAL [Concomitant]
     Dosage: 100 MG, UNK
  3. CYMBALTA [Suspect]
     Dosage: 60 MG, QD
  4. ABILIFY [Concomitant]
     Dosage: 10 MG, UNK
  5. SEROQUEL [Concomitant]
     Dosage: 75 MG, UNK

REACTIONS (1)
  - PANCREATITIS [None]
